FAERS Safety Report 23197197 (Version 2)
Quarter: 2023Q4

REPORT INFORMATION
  Report Type: Spontaneous
  Country: US (occurrence: US)
  Receive Date: 20231117
  Receipt Date: 20231121
  Transmission Date: 20240110
  Serious: No
  Sender: FDA-Public Use
  Company Number: US-ANIPHARMA-2023-US-028329

PATIENT
  Sex: 0

DRUGS (2)
  1. VANCOMYCIN HYDROCHLORIDE [Suspect]
     Active Substance: VANCOMYCIN HYDROCHLORIDE
     Indication: Clostridium difficile colitis
     Dosage: TAKE 1 CAPSULE 4 X DAILY FOR 7 DAYS, THEN TAKE 1 CAPSULE 3 X DAILY FOR 7 DAYS, THEN TAKE 1 CAPSULE 2
     Route: 065
  2. FLAGYL [Suspect]
     Active Substance: METRONIDAZOLE\METRONIDAZOLE HYDROCHLORIDE
     Dosage: 500 MG EVERY 8 HOURS X 7 DAY

REACTIONS (1)
  - Drug ineffective [Not Recovered/Not Resolved]
